FAERS Safety Report 8208105-4 (Version None)
Quarter: 2012Q1

REPORT INFORMATION
  Report Type: 
  Country: None (occurrence: None)
  Receive Date: 20120314
  Receipt Date: 20120306
  Transmission Date: 20120608
  Serious: Yes (Other)
  Sender: FDA-Public Use
  Company Number: PHHY2012BR020602

PATIENT
  Age: 16 Year
  Sex: Male

DRUGS (2)
  1. RITALIN [Suspect]
     Dosage: 1 DF, QD
     Route: 048
     Dates: start: 20110101
  2. RITALIN [Suspect]
     Indication: ATTENTION DEFICIT/HYPERACTIVITY DISORDER
     Dosage: 1 DF, QD
     Route: 048
     Dates: start: 20100101

REACTIONS (2)
  - DERMATITIS BULLOUS [None]
  - SKIN INFECTION [None]
